FAERS Safety Report 7191853-5 (Version None)
Quarter: 2010Q4

REPORT INFORMATION
  Report Type: 
  Country: None (occurrence: None)
  Receive Date: 20101223
  Receipt Date: 20101216
  Transmission Date: 20110411
  Serious: Yes (Hospitalization)
  Sender: FDA-Public Use
  Company Number: JP-PFIZER INC-2010174060

PATIENT
  Age: 57 Year
  Sex: Male

DRUGS (7)
  1. LYRICA [Suspect]
     Dosage: 75 MG/DAY
     Route: 048
     Dates: start: 20101215, end: 20101216
  2. MORPHINE HYDROCHLORIDE [Concomitant]
     Indication: ANALGESIC THERAPY
     Dosage: 144 MG/DAY
     Route: 058
     Dates: start: 20101130
  3. FLURBIPROFEN [Concomitant]
     Indication: ANALGESIC THERAPY
     Dosage: 150 MG/DAY
     Route: 042
     Dates: start: 20101130
  4. BETAMETHASONE [Concomitant]
     Indication: INFLAMMATION
     Dosage: 2 MG/DAY
     Route: 042
     Dates: start: 20101208
  5. PANTOSIN [Concomitant]
     Indication: METABOLIC ABNORMALITY MANAGEMENT
     Dosage: 200 MG/DAY
     Route: 041
     Dates: start: 20101207
  6. OMEPRAL [Concomitant]
     Dosage: 20 MG/DAY
     Route: 042
     Dates: start: 20101208
  7. MAGNESIUM SULFATE [Concomitant]
     Dosage: UNK
     Route: 048
     Dates: start: 20101213

REACTIONS (1)
  - CONVULSION [None]
